FAERS Safety Report 4851358-0 (Version None)
Quarter: 2005Q4

REPORT INFORMATION
  Report Type: 
  Country: None (occurrence: None)
  Receive Date: 20051212
  Receipt Date: 20051031
  Transmission Date: 20060501
  Serious: Yes (Hospitalization)
  Sender: FDA-Public Use
  Company Number: JP-ABBOTT-05P-087-0316066-00

PATIENT
  Sex: Male
  Weight: 19 kg

DRUGS (11)
  1. KLARICID DRY SYRUP [Suspect]
     Indication: PNEUMONIA
     Route: 048
     Dates: start: 20051020, end: 20051025
  2. KLARICID DRY SYRUP [Suspect]
     Route: 048
     Dates: start: 20051020, end: 20051025
  3. CEFOTIAM HYDROCHLORIDE [Suspect]
     Indication: PNEUMONIA
     Route: 042
     Dates: start: 20051022, end: 20051025
  4. CYPROHEPTADINE HYDROCHLORIDE [Concomitant]
     Indication: COUGH
     Route: 048
     Dates: start: 20051020
  5. CYPROHEPTADINE HYDROCHLORIDE [Concomitant]
     Indication: RHINORRHOEA
     Route: 048
  6. TIPEPIDINE HIBENZATE [Concomitant]
     Indication: COUGH
     Route: 048
     Dates: start: 20051020
  7. TIPEPIDINE HIBENZATE [Concomitant]
     Indication: RHINORRHOEA
     Route: 048
  8. PROCATEROL HCL [Concomitant]
     Indication: COUGH
     Route: 048
     Dates: start: 20051020
  9. PROCATEROL HCL [Concomitant]
     Indication: RHINORRHOEA
     Route: 048
  10. AMBROXOL HYDROCHLORIDE [Concomitant]
     Indication: COUGH
     Route: 048
     Dates: start: 20051020
  11. AMBROXOL HYDROCHLORIDE [Concomitant]
     Indication: RHINORRHOEA
     Route: 048

REACTIONS (5)
  - COUGH [None]
  - FACE OEDEMA [None]
  - PNEUMONIA [None]
  - PYREXIA [None]
  - RASH [None]
